FAERS Safety Report 13291408 (Version 1)
Quarter: 2017Q1

REPORT INFORMATION
  Report Type: Spontaneous
  Country: AU (occurrence: AU)
  Receive Date: 20170303
  Receipt Date: 20170303
  Transmission Date: 20170428
  Serious: Yes (Other)
  Sender: FDA-Public Use
  Company Number: AU-ROCHE-1899509

PATIENT
  Sex: Female

DRUGS (2)
  1. PEGASYS [Suspect]
     Active Substance: PEGINTERFERON ALFA-2A
     Indication: HEPATITIS C
     Route: 065
  2. RIBAVIRIN. [Suspect]
     Active Substance: RIBAVIRIN
     Indication: HEPATITIS C
     Route: 065

REACTIONS (12)
  - Eye disorder [Unknown]
  - Personality change [Unknown]
  - Memory impairment [Unknown]
  - Feeling of despair [Unknown]
  - Abdominal pain [Unknown]
  - Brain injury [Unknown]
  - Asthenia [Unknown]
  - Decreased interest [Unknown]
  - Blindness [Unknown]
  - Muscle spasms [Unknown]
  - Lethargy [Unknown]
  - Dementia [Unknown]
